FAERS Safety Report 12317011 (Version 1)
Quarter: 2016Q2

REPORT INFORMATION
  Report Type: Spontaneous
  Country: US (occurrence: None)
  Receive Date: 20160428
  Receipt Date: 20160428
  Transmission Date: 20160815
  Serious: Yes (Other)
  Sender: FDA-Public Use
  Company Number: None

PATIENT
  Age: 23 Year
  Sex: Female
  Weight: 142.88 kg

DRUGS (1)
  1. LAMICTAL [Suspect]
     Active Substance: LAMOTRIGINE
     Indication: SCHIZOAFFECTIVE DISORDER

REACTIONS (2)
  - Pain [None]
  - Hypoaesthesia [None]

NARRATIVE: CASE EVENT DATE: 20160427
